FAERS Safety Report 21309220 (Version 5)
Quarter: 2022Q4

REPORT INFORMATION
  Report Type: Report from Study
  Country: US (occurrence: US)
  Receive Date: 20220908
  Receipt Date: 20221103
  Transmission Date: 20230113
  Serious: Yes (Other)
  Sender: FDA-Public Use
  Company Number: US-XERIS PHARMACEUTICALS-2022XER00291

PATIENT
  Sex: Female

DRUGS (3)
  1. RECORLEV [Suspect]
     Active Substance: LEVOKETOCONAZOLE
     Indication: Cushing^s syndrome
     Dosage: 1 TABLET (150 MG), 2X/DAY
     Route: 048
     Dates: start: 2022, end: 20220830
  2. RECORLEV [Suspect]
     Active Substance: LEVOKETOCONAZOLE
     Indication: Benign neoplasm of adrenal gland
     Dosage: 150 MG, 1X/DAY
     Route: 048
     Dates: start: 2022, end: 20221009
  3. DOXEPIN [Suspect]
     Active Substance: DOXEPIN
     Dosage: UNK
     Dates: end: 2022

REACTIONS (21)
  - Neuropathy peripheral [Unknown]
  - Decreased appetite [Recovering/Resolving]
  - Nausea [Recovering/Resolving]
  - Vomiting [Unknown]
  - Fatigue [Recovering/Resolving]
  - Asthenia [Recovering/Resolving]
  - Weight decreased [Unknown]
  - Feeling abnormal [Unknown]
  - Quality of life decreased [Not Recovered/Not Resolved]
  - Confusional state [Recovering/Resolving]
  - Tremor [Recovered/Resolved]
  - Therapeutic response unexpected [Not Recovered/Not Resolved]
  - Fear [Unknown]
  - Urine flow decreased [Recovering/Resolving]
  - Anxiety [Not Recovered/Not Resolved]
  - Panic attack [Not Recovered/Not Resolved]
  - Chest discomfort [Recovered/Resolved]
  - Memory impairment [Recovering/Resolving]
  - Urinary tract infection [Unknown]
  - Dizziness [Recovering/Resolving]
  - Labelled drug-drug interaction issue [Recovered/Resolved]

NARRATIVE: CASE EVENT DATE: 20220101
